FAERS Safety Report 6613537-1 (Version None)
Quarter: 2010Q1

REPORT INFORMATION
  Report Type: 
  Country: None (occurrence: None)
  Receive Date: 20100225
  Receipt Date: 20100216
  Transmission Date: 20100710
  Serious: Yes (Death, Hospitalization)
  Sender: FDA-Public Use
  Company Number: 2009AC000034

PATIENT
  Age: 87 Year
  Sex: Female

DRUGS (21)
  1. DIGOXIN [Suspect]
     Dosage: 0.25 MG; QD; PO
     Route: 048
     Dates: start: 20070401
  2. DIGOXIN [Suspect]
     Dosage: ;PO
     Route: 048
     Dates: start: 19980101
  3. DIGOXIN [Suspect]
     Dosage: .25 MG; QD; PO
     Route: 048
     Dates: start: 20000101, end: 20080101
  4. DIGOXIN [Suspect]
     Dosage: ;PO
     Route: 048
     Dates: start: 20090101
  5. LEVOTHYROXINE SODIUM [Concomitant]
  6. WARFARIN SODIUM [Concomitant]
  7. METOPROLOL TARTRATE [Concomitant]
  8. TYLENOL-500 [Concomitant]
  9. DOCUSATE [Concomitant]
  10. PROTONIX [Concomitant]
  11. REGLAN [Concomitant]
  12. CARAFATE [Concomitant]
  13. MULTI-VITAMIN [Concomitant]
  14. LOPRESSOR [Concomitant]
  15. CARDIZEM [Concomitant]
  16. LEVOXYL [Concomitant]
  17. TOPROL-XL [Concomitant]
  18. METOCLOPRAMIDE [Concomitant]
  19. MILK OF MAGNESIA TAB [Concomitant]
  20. . [Concomitant]
  21. COUMADIN [Concomitant]

REACTIONS (17)
  - ANXIETY [None]
  - ATRIAL FIBRILLATION [None]
  - BRADYCARDIA [None]
  - CARDIOMYOPATHY [None]
  - CARDIOVASCULAR DISORDER [None]
  - CONDITION AGGRAVATED [None]
  - DYSPNOEA EXERTIONAL [None]
  - ECONOMIC PROBLEM [None]
  - FAILURE TO THRIVE [None]
  - FALL [None]
  - FEMORAL NECK FRACTURE [None]
  - HYPOTHYROIDISM [None]
  - LETHARGY [None]
  - MULTIPLE INJURIES [None]
  - PAIN [None]
  - QUALITY OF LIFE DECREASED [None]
  - THERAPEUTIC AGENT TOXICITY [None]
